FAERS Safety Report 25570138 (Version 2)
Quarter: 2025Q3

REPORT INFORMATION
  Report Type: Spontaneous
  Country: US (occurrence: US)
  Receive Date: 20250717
  Receipt Date: 20250903
  Transmission Date: 20251021
  Serious: No
  Sender: TOLMAR
  Company Number: US-Tolmar-TLM-2025-04009

PATIENT
  Age: 67 Year

DRUGS (2)
  1. JATENZO [Suspect]
     Active Substance: TESTOSTERONE UNDECANOATE
     Indication: Hypogonadism
     Dosage: FOR 3-4 MONTHS?PATIENT WAS ON 2 CAPSULES IN THE AM, 2 CAPSULES IN THE EVENING
  2. XYOSTED [Concomitant]
     Active Substance: TESTOSTERONE ENANTHATE
     Indication: Product used for unknown indication

REACTIONS (5)
  - Blood testosterone abnormal [Unknown]
  - Fatigue [Unknown]
  - Sluggishness [Unknown]
  - Off label use [Unknown]
  - Drug ineffective [Unknown]

NARRATIVE: CASE EVENT DATE: 20250409
